FAERS Safety Report 6665352-0 (Version None)
Quarter: 2010Q2

REPORT INFORMATION
  Report Type: 
  Country: None (occurrence: None)
  Receive Date: 20100402
  Receipt Date: 20100324
  Transmission Date: 20101027
  Serious: Yes (Hospitalization, Other)
  Sender: FDA-Public Use
  Company Number: US-ABBOTT-10P-163-0634770-00

PATIENT
  Sex: Female
  Weight: 59.02 kg

DRUGS (4)
  1. HUMIRA [Suspect]
     Indication: CROHN'S DISEASE
     Route: 058
     Dates: start: 20090801, end: 20090801
  2. HUMIRA [Suspect]
     Route: 058
     Dates: start: 20090101
  3. HUMIRA [Suspect]
     Route: 058
     Dates: start: 20090101
  4. HUMIRA [Suspect]
     Route: 058
     Dates: start: 20100201

REACTIONS (6)
  - CHOLELITHIASIS [None]
  - INCISION SITE ABSCESS [None]
  - INJECTION SITE PAIN [None]
  - INTESTINAL STENOSIS [None]
  - NEPHROLITHIASIS [None]
  - SURGERY [None]
